FAERS Safety Report 8548301-X (Version None)
Quarter: 2012Q3

REPORT INFORMATION
  Report Type: 
  Country: None (occurrence: None)
  Receive Date: 20120717
  Receipt Date: 20120706
  Transmission Date: 20120928
  Serious: Yes (Hospitalization)
  Sender: FDA-Public Use
  Company Number: DKLU1082712

PATIENT
  Age: 19 Month
  Sex: Female
  Weight: 8.5 kg

DRUGS (4)
  1. ZONISAMIDE [Concomitant]
  2. TOPIRAMATE [Concomitant]
  3. SABRIL [Suspect]
     Indication: INFANTILE SPASMS
     Dosage: 500 MG MILLIGRAM(S), 1 IN 1 D, ORAL
     Route: 048
  4. PHENOBARBITAL TAB [Concomitant]

REACTIONS (7)
  - CONVULSION [None]
  - INFANTILE SPASMS [None]
  - FAILURE TO THRIVE [None]
  - INAPPROPRIATE SCHEDULE OF DRUG ADMINISTRATION [None]
  - WEIGHT DECREASED [None]
  - UPPER RESPIRATORY TRACT CONGESTION [None]
  - MUSCLE TWITCHING [None]
